FAERS Safety Report 9111407 (Version 1)
Quarter: 2013Q1

REPORT INFORMATION
  Report Type: Spontaneous
  Country: US (occurrence: US)
  Receive Date: 20130219
  Receipt Date: 20130219
  Transmission Date: 20140127
  Serious: No
  Sender: FDA-Public Use
  Company Number: US-BRISTOL-MYERS SQUIBB COMPANY-16548893

PATIENT
  Age: 57 Year
  Sex: Female

DRUGS (4)
  1. ORENCIA FOR INJ [Suspect]
     Indication: RHEUMATOID ARTHRITIS
     Dosage: RECENT INF 19SAPR12
     Route: 042
     Dates: start: 201108
  2. METHOTREXATE [Suspect]
  3. PLAQUENIL [Concomitant]
  4. CELEBREX [Concomitant]

REACTIONS (4)
  - Herpes zoster [Unknown]
  - Tinnitus [Unknown]
  - Urinary tract infection [Unknown]
  - Migraine [Unknown]
